FAERS Safety Report 11151710 (Version 1)
Quarter: 2015Q2

REPORT INFORMATION
  Report Type: Spontaneous
  Country: US (occurrence: None)
  Receive Date: 20150529
  Receipt Date: 20150529
  Transmission Date: 20150821
  Serious: Yes (Disabling)
  Sender: FDA-Public Use
  Company Number: None

PATIENT
  Age: 54 Year
  Sex: Male
  Weight: 95.26 kg

DRUGS (10)
  1. ALBUTEROL MDI (PRN) [Concomitant]
  2. NAPROXEN. [Concomitant]
     Active Substance: NAPROXEN
  3. VIT-C [Concomitant]
  4. FEXOFENADINE [Concomitant]
     Active Substance: FEXOFENADINE\FEXOFENADINE HYDROCHLORIDE
  5. PROTONIX (PRN) [Concomitant]
  6. AMITRIPTYLINE (Q-HS FOR SLEEP) [Concomitant]
  7. MONTELUKAST [Concomitant]
     Active Substance: MONTELUKAST SODIUM
  8. METHYLPREDNISOLONE. [Suspect]
     Active Substance: METHYLPREDNISOLONE
     Indication: INTERVERTEBRAL DISC PROTRUSION
  9. BACLOFEN. [Concomitant]
     Active Substance: BACLOFEN
  10. HYDROMORPHONE [Concomitant]
     Active Substance: HYDROMORPHONE

REACTIONS (3)
  - Sciatica [None]
  - Drug ineffective [None]
  - Arachnoiditis [None]

NARRATIVE: CASE EVENT DATE: 20141219
